FAERS Safety Report 9128574 (Version 1)
Quarter: 2013Q1

REPORT INFORMATION
  Report Type: Report from Study
  Country: US (occurrence: US)
  Receive Date: 20130125
  Receipt Date: 20130125
  Transmission Date: 20140127
  Serious: Yes (Other)
  Sender: FDA-Public Use
  Company Number: US-US-EMD SERONO, INC.-7188288

PATIENT
  Sex: Female

DRUGS (2)
  1. REBIF [Suspect]
     Indication: MULTIPLE SCLEROSIS
     Route: 058
     Dates: start: 20030116
  2. KEPPRA [Concomitant]
     Indication: MIGRAINE

REACTIONS (6)
  - Rheumatoid arthritis [Unknown]
  - Bursitis [Unknown]
  - Nerve injury [Unknown]
  - Blood pressure increased [Recovered/Resolved]
  - Migraine [Recovering/Resolving]
  - Vision blurred [Not Recovered/Not Resolved]
